FAERS Safety Report 24213590 (Version 1)
Quarter: 2024Q3

REPORT INFORMATION
  Report Type: Spontaneous
  Country: US (occurrence: None)
  Receive Date: 20240814
  Receipt Date: 20240814
  Transmission Date: 20241017
  Serious: Yes (Hospitalization)
  Sender: Public
  Company Number: None

PATIENT
  Age: 77 Year
  Sex: Male
  Weight: 60 kg

DRUGS (11)
  1. AZATHIOPRINE [Suspect]
     Active Substance: AZATHIOPRINE
     Indication: Autoimmune disorder
     Dosage: FREQUENCY : DAILY;?
     Route: 048
     Dates: start: 20240604, end: 20240724
  2. AZATHIOPRINE [Suspect]
     Active Substance: AZATHIOPRINE
     Indication: Immune-mediated myositis
  3. CHOLECALCIFEROL [Concomitant]
     Active Substance: CHOLECALCIFEROL
  4. DULOXETINE [Concomitant]
     Active Substance: DULOXETINE
  5. EMPAGLIFLOZIN [Concomitant]
     Active Substance: EMPAGLIFLOZIN
  6. FERROUS SULFATE [Concomitant]
     Active Substance: FERROUS SULFATE
  7. GAMUNEX [Concomitant]
     Active Substance: HUMAN IMMUNOGLOBULIN G
  8. METFORMIN [Concomitant]
     Active Substance: METFORMIN HYDROCHLORIDE
  9. MIRTAZAPINE [Concomitant]
     Active Substance: MIRTAZAPINE
  10. PRAZOSIN [Concomitant]
     Active Substance: PRAZOSIN
  11. PREDNISONE [Concomitant]
     Active Substance: PREDNISONE

REACTIONS (8)
  - Syncope [None]
  - Dyspnoea [None]
  - Tongue blistering [None]
  - Lip blister [None]
  - Neutropenia [None]
  - Anaemia [None]
  - Thrombocytopenia [None]
  - White blood cell count decreased [None]

NARRATIVE: CASE EVENT DATE: 20240728
